FAERS Safety Report 8289387-X (Version None)
Quarter: 2012Q2

REPORT INFORMATION
  Report Type: 
  Country: None (occurrence: None)
  Receive Date: 20120417
  Receipt Date: 20120413
  Transmission Date: 20120825
  Serious: Yes (Death, Other)
  Sender: FDA-Public Use
  Company Number: FR-ASTRAZENECA-2012SE24336

PATIENT
  Sex: Female

DRUGS (5)
  1. MIANSERINE [Concomitant]
     Indication: DYSTHYMIC DISORDER
  2. TERCIAN [Concomitant]
     Indication: DYSTHYMIC DISORDER
  3. QUETIAPINE FUMARATE [Suspect]
     Indication: DYSTHYMIC DISORDER
     Route: 048
  4. ABILIFY [Concomitant]
     Indication: DYSTHYMIC DISORDER
  5. IMOVANE [Concomitant]
     Indication: DYSTHYMIC DISORDER

REACTIONS (2)
  - INTENTIONAL DRUG MISUSE [None]
  - COMPLETED SUICIDE [None]
